FAERS Safety Report 9238367 (Version 1)
Quarter: 2013Q2

REPORT INFORMATION
  Report Type: Spontaneous
  Country: US (occurrence: None)
  Receive Date: 20130417
  Receipt Date: 20130417
  Transmission Date: 20140414
  Serious: Yes (Life-Threatening, Hospitalization)
  Sender: FDA-Public Use
  Company Number: None

PATIENT
  Age: 56 Year
  Sex: Male
  Weight: 98 kg

DRUGS (1)
  1. GAMMAGARD [Suspect]
     Indication: POLYMYOSITIS
     Dosage: 1000 ML (100GM) DAILY X 2 DAYS INFUSION
     Dates: start: 201210, end: 201303

REACTIONS (5)
  - Abdominal discomfort [None]
  - Disorientation [None]
  - Movement disorder [None]
  - Speech disorder [None]
  - Cerebral thrombosis [None]
